FAERS Safety Report 13252925 (Version 5)
Quarter: 2018Q1

REPORT INFORMATION
  Report Type: Report from Study
  Country: JP (occurrence: JP)
  Receive Date: 20170220
  Receipt Date: 20180305
  Transmission Date: 20180508
  Serious: Yes (Other)
  Sender: FDA-Public Use
  Company Number: PHJP2017JP005261

PATIENT
  Age: 52 Year
  Sex: Male

DRUGS (2)
  1. TAFINLAR [Suspect]
     Active Substance: DABRAFENIB MESYLATE
     Indication: MALIGNANT MELANOMA STAGE III
     Dosage: 300 MG, QD
     Route: 048
     Dates: start: 20160616, end: 20160807
  2. MEKINIST [Suspect]
     Active Substance: TRAMETINIB DIMETHYL SULFOXIDE
     Indication: MALIGNANT MELANOMA STAGE III
     Dosage: 2 MG, QD
     Route: 048
     Dates: start: 20160616, end: 20160807

REACTIONS (6)
  - Erythema [Unknown]
  - Nodular rash [Recovered/Resolved]
  - Panniculitis [Recovered/Resolved]
  - Skin induration [Unknown]
  - Ventricular extrasystoles [Recovering/Resolving]
  - Tenderness [Unknown]

NARRATIVE: CASE EVENT DATE: 20160708
